FAERS Safety Report 4887545-5 (Version None)
Quarter: 2006Q1

REPORT INFORMATION
  Report Type: 
  Country: None (occurrence: None)
  Receive Date: 20060123
  Receipt Date: 20060112
  Transmission Date: 20060701
  Serious: Yes (Other)
  Sender: FDA-Public Use
  Company Number: US-JNJFOC-20060102686

PATIENT
  Age: 76 Year
  Sex: Female
  Weight: 88 kg

DRUGS (4)
  1. ELMIRON [Suspect]
     Indication: CYSTITIS INTERSTITIAL
     Route: 048
  2. TOPROL [Concomitant]
  3. COUMADIN [Concomitant]
  4. SYNTHROID [Concomitant]

REACTIONS (3)
  - CHEST PAIN [None]
  - OEDEMA [None]
  - WHITE BLOOD CELL COUNT DECREASED [None]
